FAERS Safety Report 21807528 (Version 1)
Quarter: 2023Q1

REPORT INFORMATION
  Report Type: Spontaneous
  Country: US (occurrence: None)
  Receive Date: 20230103
  Receipt Date: 20230103
  Transmission Date: 20230418
  Serious: No
  Sender: FDA-Public Use
  Company Number: 2022A409714

PATIENT
  Age: 82 Year
  Sex: Female
  Weight: 56.7 kg

DRUGS (2)
  1. FARXIGA [Suspect]
     Active Substance: DAPAGLIFLOZIN PROPANEDIOL
     Indication: Diabetes mellitus
     Route: 048
  2. FARXIGA [Suspect]
     Active Substance: DAPAGLIFLOZIN PROPANEDIOL
     Indication: Renal disorder
     Route: 048

REACTIONS (4)
  - Headache [Not Recovered/Not Resolved]
  - Product dose omission issue [Unknown]
  - Intentional device misuse [Unknown]
  - Medication error [Unknown]

NARRATIVE: CASE EVENT DATE: 20221201
